FAERS Safety Report 25706190 (Version 1)
Quarter: 2025Q3

REPORT INFORMATION
  Report Type: Spontaneous
  Country: US (occurrence: US)
  Receive Date: 20250820
  Receipt Date: 20250820
  Transmission Date: 20251021
  Serious: No
  Sender: SPRINGWORKS THERAPEUTIC
  Company Number: US-SPRINGWORKS THERAPEUTICS-SW-002742

PATIENT

DRUGS (1)
  1. GOMEKLI [Suspect]
     Active Substance: MIRDAMETINIB
     Indication: Product used for unknown indication
     Dates: start: 20250403

REACTIONS (8)
  - Pain [Unknown]
  - Abdominal discomfort [Unknown]
  - Pruritus [Unknown]
  - Peripheral swelling [Unknown]
  - Nausea [Unknown]
  - Fatigue [Unknown]
  - Dermatitis acneiform [Unknown]
  - Rash [Unknown]

NARRATIVE: CASE EVENT DATE: 20250401
